FAERS Safety Report 20721459 (Version 1)
Quarter: 2022Q2

REPORT INFORMATION
  Report Type: Spontaneous
  Country: US (occurrence: None)
  Receive Date: 20220417
  Receipt Date: 20220417
  Transmission Date: 20220721
  Serious: Yes (Hospitalization)
  Sender: FDA-Public Use
  Company Number: None

PATIENT
  Age: 58 Year

DRUGS (8)
  1. ENVARSUS XR [Suspect]
     Active Substance: TACROLIMUS
     Dosage: FREQUENCY : DAILY;?
     Route: 048
     Dates: start: 20200319
  2. PREDNISONE [Concomitant]
     Active Substance: PREDNISONE
  3. TAMSULOSIN [Concomitant]
     Active Substance: TAMSULOSIN
  4. ASPIRIN [Concomitant]
     Active Substance: ASPIRIN
  5. MYCOPHENOLIC ACID [Concomitant]
     Active Substance: MYCOPHENOLIC ACID
  6. DILTIAZEM [Concomitant]
     Active Substance: DILTIAZEM
  7. VITAMIN D [Concomitant]
     Active Substance: VITAMIN D NOS
  8. SODIUM BICARBONATE [Concomitant]
     Active Substance: SODIUM BICARBONATE

REACTIONS (1)
  - COVID-19 [None]

NARRATIVE: CASE EVENT DATE: 20220415
